FAERS Safety Report 12548640 (Version 1)
Quarter: 2016Q3

REPORT INFORMATION
  Report Type: Spontaneous
  Country: US (occurrence: US)
  Receive Date: 20160712
  Receipt Date: 20160712
  Transmission Date: 20161109
  Serious: No
  Sender: FDA-Public Use
  Company Number: US-TEVA-632187USA

PATIENT
  Age: 19 Year
  Sex: Male

DRUGS (1)
  1. LAMOTRIGINE. [Suspect]
     Active Substance: LAMOTRIGINE
     Indication: BIPOLAR DISORDER
     Dates: start: 201510

REACTIONS (6)
  - Stress [Unknown]
  - Depression [Unknown]
  - Product substitution issue [Unknown]
  - Drug ineffective [Unknown]
  - Anxiety [Unknown]
  - Activities of daily living impaired [Unknown]

NARRATIVE: CASE EVENT DATE: 20151013
